FAERS Safety Report 8853052 (Version 3)
Quarter: 2012Q4

REPORT INFORMATION
  Report Type: Report from Study
  Country: AU (occurrence: AU)
  Receive Date: 20121022
  Receipt Date: 20121112
  Transmission Date: 20130627
  Serious: Yes (Other)
  Sender: FDA-Public Use
  Company Number: AU-ROCHE-1143728

PATIENT
  Age: 81 Year
  Sex: Female

DRUGS (10)
  1. TOCILIZUMAB [Suspect]
     Indication: RHEUMATOID ARTHRITIS
     Route: 042
     Dates: start: 20120416
  2. PANADOL OSTEO [Concomitant]
     Route: 065
  3. AMIODARONE HYDROCHLORIDE [Concomitant]
     Route: 048
  4. FOLIC ACID [Concomitant]
     Route: 048
  5. NEO B12 [Concomitant]
     Dosage: dose 1 mg/ml
     Route: 030
  6. VAGINAL CREAM [Concomitant]
     Route: 067
  7. PREDNISOLONE [Concomitant]
     Route: 048
  8. SPIRIVA [Concomitant]
     Route: 065
  9. VENTOLIN [Concomitant]
     Dosage: 100 mcg/dose, puffs
     Route: 065
  10. AMIODARONE [Concomitant]
     Route: 048

REACTIONS (5)
  - Bradycardia [Recovering/Resolving]
  - Balance disorder [Unknown]
  - Lymphopenia [Unknown]
  - Thrombocytopenia [Unknown]
  - Mean cell volume increased [Unknown]
